FAERS Safety Report 20403750 (Version 2)
Quarter: 2022Q1

REPORT INFORMATION
  Report Type: Report from Study
  Country: CA (occurrence: CA)
  Receive Date: 20220131
  Receipt Date: 20220222
  Transmission Date: 20220423
  Serious: Yes (Other)
  Sender: FDA-Public Use
  Company Number: CA-JNJFOC-20211221065

PATIENT
  Age: 42 Year
  Sex: Female
  Weight: 124 kg

DRUGS (1)
  1. REMICADE [Suspect]
     Active Substance: INFLIXIMAB
     Indication: Crohn^s disease
     Dosage: LAST INFUSION GIVEN: 13-OCT-2021.?ADDITIONAL EXPIRY DATE: MAY-2024?V1: LAST INFUSION GIVEN: 07/DEC/2
     Route: 042

REACTIONS (1)
  - Tongue neoplasm malignant stage unspecified [Unknown]

NARRATIVE: CASE EVENT DATE: 20211001
